FAERS Safety Report 6825230-0 (Version None)
Quarter: 2010Q3

REPORT INFORMATION
  Report Type: 
  Country: None (occurrence: None)
  Receive Date: 20100708
  Receipt Date: 20070109
  Transmission Date: 20110219
  Serious: No
  Sender: FDA-Public Use
  Company Number: US-PFIZER INC-2007003128

PATIENT
  Sex: Male
  Weight: 117.93 kg

DRUGS (7)
  1. CHANTIX [Suspect]
     Indication: SMOKING CESSATION THERAPY
     Route: 048
     Dates: start: 20070107, end: 20070109
  2. LIPITOR [Concomitant]
  3. LISINOPRIL [Concomitant]
  4. NORVASC [Concomitant]
  5. AMIODARONE HCL [Concomitant]
  6. COUMADIN [Concomitant]
  7. TOPROL-XL [Concomitant]

REACTIONS (4)
  - HYPERSENSITIVITY [None]
  - MIDDLE INSOMNIA [None]
  - PAIN [None]
  - PRURITUS [None]
